FAERS Safety Report 18508142 (Version 6)
Quarter: 2021Q3

REPORT INFORMATION
  Report Type: Report from Study
  Country: FR (occurrence: FR)
  Receive Date: 20201116
  Receipt Date: 20210707
  Transmission Date: 20211014
  Serious: Yes (Death, Life-Threatening, Hospitalization, Other)
  Sender: FDA-Public Use
  Company Number: FR-INCYTE CORPORATION-2020IN011246

PATIENT

DRUGS (4)
  1. ELIQUIS [Suspect]
     Active Substance: APIXABAN
     Indication: ANTICOAGULANT THERAPY
     Dosage: 10 MG, BID
     Route: 065
     Dates: start: 20190211
  2. ELIQUIS [Suspect]
     Active Substance: APIXABAN
     Dosage: 2.5 UNK
     Route: 048
     Dates: start: 20200821
  3. JAKAVI [Suspect]
     Active Substance: RUXOLITINIB
     Indication: POLYCYTHAEMIA VERA
     Dosage: 25 MG DAILY
     Route: 048
     Dates: start: 20200706, end: 202102
  4. JAKAVI [Suspect]
     Active Substance: RUXOLITINIB
     Indication: MYELOFIBROSIS
     Dosage: 20 MG, DAILY
     Route: 048
     Dates: start: 20200325, end: 20200706

REACTIONS (14)
  - Vomiting [Unknown]
  - Gastrointestinal haemorrhage [Recovered/Resolved]
  - Anaemia [Recovering/Resolving]
  - Nausea [Unknown]
  - Pleural effusion [Unknown]
  - Pallor [Unknown]
  - Splenomegaly [Unknown]
  - Pulmonary oedema [Recovered/Resolved]
  - Dyspnoea [Recovered/Resolved]
  - Anaemia [Recovered/Resolved]
  - Acute pulmonary oedema [Recovered/Resolved]
  - Malnutrition [Unknown]
  - Asthenia [Unknown]
  - COVID-19 pneumonia [Fatal]

NARRATIVE: CASE EVENT DATE: 20200821
